FAERS Safety Report 10271415 (Version 1)
Quarter: 2014Q2

REPORT INFORMATION
  Report Type: Spontaneous
  Country: JP (occurrence: None)
  Receive Date: 20140625
  Receipt Date: 20140625
  Transmission Date: 20141212
  Serious: Yes (Other)
  Sender: FDA-Public Use
  Company Number: 2014JP00608

PATIENT
  Age: 39 Year
  Sex: Male

DRUGS (4)
  1. ABACAVIR [Suspect]
     Indication: ACQUIRED IMMUNODEFICIENCY SYNDROME
  2. LAMIVUDINE [Suspect]
     Indication: ACQUIRED IMMUNODEFICIENCY SYNDROME
  3. RALTEGRAVIR [Suspect]
     Indication: ACQUIRED IMMUNODEFICIENCY SYNDROME
  4. LOPINAVIR/RITONAVIR [Suspect]
     Indication: ACQUIRED IMMUNODEFICIENCY SYNDROME

REACTIONS (6)
  - Histiocytosis haematophagic [None]
  - Disseminated intravascular coagulation [None]
  - Amoebiasis [None]
  - Alanine aminotransferase increased [None]
  - Aspartate aminotransferase increased [None]
  - Immune reconstitution inflammatory syndrome [None]
